FAERS Safety Report 21812200 (Version 1)
Quarter: 2023Q1

REPORT INFORMATION
  Report Type: Spontaneous
  Country: None (occurrence: US)
  Receive Date: 20230103
  Receipt Date: 20230103
  Transmission Date: 20230417
  Serious: Yes (Other)
  Sender: FDA-Public Use
  Company Number: US-Vero Biotech-2136360

PATIENT
  Sex: Male

DRUGS (2)
  1. GENOSYL [Suspect]
     Active Substance: NITRIC OXIDE
     Indication: Hypoxia
     Route: 055
     Dates: start: 20221219
  2. GENOSYL [Suspect]
     Active Substance: NITRIC OXIDE

REACTIONS (2)
  - Respiratory failure [Unknown]
  - Product administration interrupted [None]

NARRATIVE: CASE EVENT DATE: 20221219
